FAERS Safety Report 11512588 (Version 2)
Quarter: 2015Q4

REPORT INFORMATION
  Report Type: Spontaneous
  Country: IT (occurrence: IT)
  Receive Date: 20150916
  Receipt Date: 20151118
  Transmission Date: 20160304
  Serious: Yes (Hospitalization)
  Sender: FDA-Public Use
  Company Number: IT-ACTAVIS-2015-19351

PATIENT
  Age: 73 Year
  Sex: Male
  Weight: 67 kg

DRUGS (3)
  1. DESAMETASONE FOSF                  /00016002/ [Suspect]
     Active Substance: DEXAMETHASONE SODIUM PHOSPHATE
     Indication: BURKITT^S LYMPHOMA RECURRENT
     Dosage: 8 MG, CYCLICAL
     Route: 065
     Dates: start: 20150120, end: 20150120
  2. OXALIPLATINO ACTAVIS [Suspect]
     Active Substance: OXALIPLATIN
     Indication: BURKITT^S LYMPHOMA
     Dosage: 100 MG, CYCLICAL
     Route: 041
     Dates: start: 20150120, end: 20150120
  3. ARACYTIN [Suspect]
     Active Substance: CYTARABINE
     Indication: BURKITT^S LYMPHOMA RECURRENT
     Dosage: 2 G, CYCLICAL
     Route: 041
     Dates: start: 20150121, end: 20150121

REACTIONS (1)
  - Bacterial sepsis [Recovered/Resolved]

NARRATIVE: CASE EVENT DATE: 20150127
